FAERS Safety Report 25971005 (Version 1)
Quarter: 2025Q4

REPORT INFORMATION
  Report Type: Spontaneous
  Country: EU (occurrence: EU)
  Receive Date: 20251028
  Receipt Date: 20251028
  Transmission Date: 20260118
  Serious: Yes (Hospitalization, Other)
  Sender: MERCK SHARP & DOHME LLC
  Company Number: None

PATIENT
  Age: 60 Year
  Sex: Female
  Weight: 71 kg

DRUGS (1)
  1. KEYTRUDA [Suspect]
     Active Substance: PEMBROLIZUMAB
     Indication: Breast cancer
     Dosage: 142 MG??AT UNKNOWN INTERVALS, THE PATIENT RECEIVED 3X PACLITAXEL (CHANGED TO GEMCITABINE DURING T...
     Route: 042
     Dates: start: 20250425, end: 20250826

REACTIONS (3)
  - Cytopenia [Unknown]
  - Pyrexia [Unknown]
  - Amegakaryocytic thrombocytopenia [Recovered/Resolved with Sequelae]

NARRATIVE: CASE EVENT DATE: 20250908
